FAERS Safety Report 22238997 (Version 1)
Quarter: 2023Q2

REPORT INFORMATION
  Report Type: Spontaneous
  Country: US (occurrence: None)
  Receive Date: 20230420
  Receipt Date: 20230420
  Transmission Date: 20230722
  Serious: Yes (Hospitalization)
  Sender: FDA-Public Use
  Company Number: None

PATIENT
  Age: 32 Year
  Sex: Female
  Weight: 91 kg

DRUGS (1)
  1. METHIMAZOLE [Suspect]
     Active Substance: METHIMAZOLE
     Indication: Hyperthyroidism
     Dosage: FREQUENCY : DAILY;?
     Route: 048
     Dates: start: 20230202, end: 20230404

REACTIONS (9)
  - Immune thrombocytopenia [None]
  - Myelosuppression [None]
  - Skin lesion [None]
  - Oral mucosal eruption [None]
  - Red blood cell transfusion [None]
  - Paroxysmal nocturnal haemoglobinuria [None]
  - Bone marrow failure [None]
  - Thyrotoxic crisis [None]
  - Pancytopenia [None]

NARRATIVE: CASE EVENT DATE: 20230404
